FAERS Safety Report 11058785 (Version 5)
Quarter: 2016Q2

REPORT INFORMATION
  Report Type: Spontaneous
  Country: ES (occurrence: ES)
  Receive Date: 20150423
  Receipt Date: 20160415
  Transmission Date: 20160815
  Serious: Yes (Death, Life-Threatening, Hospitalization, Other)
  Sender: FDA-Public Use
  Company Number: ES-JNJFOC-20150416695

PATIENT
  Age: 59 Year
  Sex: Female
  Weight: 51 kg

DRUGS (10)
  1. PROPRANOLOL [Concomitant]
     Active Substance: PROPRANOLOL\PROPRANOLOL HYDROCHLORIDE
     Route: 065
  2. RIBAVIRIN. [Suspect]
     Active Substance: RIBAVIRIN
     Indication: HEPATITIS C
     Route: 065
     Dates: start: 20150225, end: 20150417
  3. OLYSIO [Suspect]
     Active Substance: SIMEPREVIR
     Indication: HEPATITIS C
     Route: 048
     Dates: start: 20150225, end: 20150417
  4. FERROSANOL [Concomitant]
     Active Substance: FERROUS GLUCONATE
     Route: 065
  5. EUTIROX [Concomitant]
     Active Substance: LEVOTHYROXINE SODIUM
     Indication: PRODUCT USED FOR UNKNOWN INDICATION
     Route: 065
  6. EUCREAS [Concomitant]
     Active Substance: METFORMIN HYDROCHLORIDE\VILDAGLIPTIN
     Route: 065
  7. PARIET [Concomitant]
     Active Substance: RABEPRAZOLE SODIUM
     Route: 065
  8. DIAMICRON [Concomitant]
     Active Substance: GLICLAZIDE
     Route: 065
  9. SOFOSBUVIR [Suspect]
     Active Substance: SOFOSBUVIR
     Indication: HEPATITIS C
     Route: 065
     Dates: start: 20150225, end: 20150417
  10. KEPPRA [Suspect]
     Active Substance: LEVETIRACETAM
     Indication: PRODUCT USED FOR UNKNOWN INDICATION
     Route: 065

REACTIONS (15)
  - Hyponatraemia [Not Recovered/Not Resolved]
  - Oedema [Unknown]
  - Ascites [Not Recovered/Not Resolved]
  - Infection [Not Recovered/Not Resolved]
  - Encephalopathy [Unknown]
  - Ecchymosis [Unknown]
  - Hepatorenal syndrome [Not Recovered/Not Resolved]
  - Fatigue [Unknown]
  - Anaemia [Not Recovered/Not Resolved]
  - Hyperbilirubinaemia [Not Recovered/Not Resolved]
  - Gastrointestinal haemorrhage [Unknown]
  - Skin lesion [Not Recovered/Not Resolved]
  - Acute hepatic failure [Fatal]
  - Somnolence [Not Recovered/Not Resolved]
  - Pneumonia [Unknown]

NARRATIVE: CASE EVENT DATE: 20150413
